FAERS Safety Report 11714226 (Version 1)
Quarter: 2015Q4

REPORT INFORMATION
  Report Type: Report from Study
  Country: CO (occurrence: CO)
  Receive Date: 20151109
  Receipt Date: 20151109
  Transmission Date: 20160304
  Serious: Yes (Hospitalization, Other)
  Sender: FDA-Public Use
  Company Number: CO-SHIRE-CO201513731

PATIENT
  Age: 14 Year
  Sex: Male

DRUGS (1)
  1. IDURSULFASE [Suspect]
     Active Substance: IDURSULFASE
     Indication: MUCOPOLYSACCHARIDOSIS II
     Dosage: UNK UNK, UNKNOWN
     Route: 041

REACTIONS (1)
  - Cellulitis [Unknown]
